FAERS Safety Report 14785682 (Version 1)
Quarter: 2018Q2

REPORT INFORMATION
  Report Type: Spontaneous
  Country: ES (occurrence: ES)
  Receive Date: 20180420
  Receipt Date: 20180420
  Transmission Date: 20180711
  Serious: Yes (Hospitalization)
  Sender: FDA-Public Use
  Company Number: ES-TEVA-2018-ES-881127

PATIENT
  Age: 80 Year
  Sex: Male

DRUGS (2)
  1. CARBOPLATINO (2323A) [Suspect]
     Active Substance: CARBOPLATIN
     Dates: start: 20171213, end: 20171213
  2. ETOPOSIDO TEVA 20 MG/ML [Suspect]
     Active Substance: ETOPOSIDE
     Dosage: 127 MG DAYS 1-3 C/21 DAYS
     Dates: start: 20171213, end: 20171215

REACTIONS (1)
  - Febrile neutropenia [Recovered/Resolved]

NARRATIVE: CASE EVENT DATE: 20171225
